FAERS Safety Report 18821833 (Version 1)
Quarter: 2021Q1

REPORT INFORMATION
  Report Type: Spontaneous
  Country: US (occurrence: US)
  Receive Date: 20210202
  Receipt Date: 20210202
  Transmission Date: 20210419
  Serious: Yes (Hospitalization)
  Sender: FDA-Public Use
  Company Number: US-PACIRA-2021000057

PATIENT
  Age: 63 Year
  Sex: Female

DRUGS (12)
  1. OXYCODONE 5 [Concomitant]
     Indication: POSTOPERATIVE CARE
     Dosage: OXYCONTIN 10MG PREOP, OXYCODNONE 5MG MULTIMODAL PROTOCOL
     Route: 065
  2. ANCEF [Concomitant]
     Active Substance: CEFAZOLIN SODIUM
     Indication: PREOPERATIVE CARE
     Dosage: 1 G
     Route: 065
  3. VERSED [Concomitant]
     Active Substance: MIDAZOLAM HYDROCHLORIDE
     Indication: PREOPERATIVE CARE
     Dosage: 2 G
     Route: 065
  4. EXPAREL [Suspect]
     Active Substance: BUPIVACAINE
     Indication: POSTOPERATIVE ANALGESIA
     Dosage: 266 MG, 20CC
     Route: 065
  5. TYLENOL [Concomitant]
     Active Substance: ACETAMINOPHEN
     Indication: POSTOPERATIVE CARE
     Dosage: 1000 MG
     Route: 065
  6. TRAMADOL. [Concomitant]
     Active Substance: TRAMADOL
     Indication: PREOPERATIVE CARE
     Dosage: 50 MG
     Route: 065
  7. LOVENOX [Concomitant]
     Active Substance: ENOXAPARIN SODIUM
     Indication: POSTOPERATIVE CARE
     Dosage: 40
     Route: 065
  8. GABAPENTIN. [Concomitant]
     Active Substance: GABAPENTIN
     Indication: POSTOPERATIVE CARE
     Dosage: BID FOR 2 WEEKS
     Route: 065
  9. FENTANYL. [Concomitant]
     Active Substance: FENTANYL
     Indication: PREOPERATIVE CARE
     Dosage: 50 MCG
     Route: 065
  10. ENTERIC?COATED ASPIRIN 325 MG [Concomitant]
     Indication: THROMBOSIS PROPHYLAXIS
     Dosage: BID
     Route: 065
  11. CELEBREX [Concomitant]
     Active Substance: CELECOXIB
     Indication: POSTOPERATIVE CARE
     Dosage: 200 MG
     Route: 065
  12. VANCOMYCIN [Concomitant]
     Active Substance: VANCOMYCIN
     Indication: PREOPERATIVE CARE
     Dosage: 1 G
     Route: 065

REACTIONS (2)
  - Delayed recovery from anaesthesia [Unknown]
  - Oxygen saturation decreased [Unknown]
